FAERS Safety Report 7264909-6 (Version None)
Quarter: 2011Q1

REPORT INFORMATION
  Report Type: 
  Country: None (occurrence: None)
  Receive Date: 20110131
  Receipt Date: 20101110
  Transmission Date: 20110831
  Serious: Yes (Hospitalization, Other)
  Sender: FDA-Public Use
  Company Number: US-BAYER-201038042NA

PATIENT
  Sex: Female
  Weight: 82 kg

DRUGS (5)
  1. OCELLA [Suspect]
     Indication: ACNE
  2. YASMIN [Suspect]
     Indication: ACNE
     Dosage: UNK
     Dates: start: 20020101, end: 20080101
  3. YAZ [Suspect]
     Indication: PREMENSTRUAL SYNDROME
  4. YASMIN [Suspect]
     Indication: PREMENSTRUAL SYNDROME
  5. YAZ [Suspect]
     Indication: ACNE
     Dosage: UNK
     Dates: start: 20010101, end: 20080101

REACTIONS (2)
  - INJURY [None]
  - GALLBLADDER DISORDER [None]
